FAERS Safety Report 6915225-0 (Version None)
Quarter: 2010Q3

REPORT INFORMATION
  Report Type: 
  Country: None (occurrence: None)
  Receive Date: 20100805
  Receipt Date: 20100805
  Transmission Date: 20110219
  Serious: Yes (Other)
  Sender: FDA-Public Use
  Company Number: None

PATIENT
  Age: 29 Year
  Sex: Female
  Weight: 73.4827 kg

DRUGS (2)
  1. MICONAZOLE 3 [Suspect]
     Indication: VULVOVAGINAL MYCOTIC INFECTION
     Dosage: 3 PREFILLED APPLICATIONS ONCE AT BEDTIME VAG
     Route: 067
     Dates: start: 20100709, end: 20100721
  2. MICONAZOLE 3 [Suspect]
     Dosage: EXTERNAL VULVAR CREAM TWICE A DAY VAG
     Route: 067

REACTIONS (5)
  - INSOMNIA [None]
  - SWELLING [None]
  - URTICARIA [None]
  - VULVOVAGINAL BURNING SENSATION [None]
  - VULVOVAGINAL PRURITUS [None]
